FAERS Safety Report 4840821-4 (Version None)
Quarter: 2005Q4

REPORT INFORMATION
  Report Type: 
  Country: None (occurrence: None)
  Receive Date: 20051130
  Receipt Date: 20050415
  Transmission Date: 20060501
  Serious: No
  Sender: FDA-Public Use
  Company Number: US-BRISTOL-MYERS SQUIBB COMPANY-12934634

PATIENT
  Age: 38 Year
  Sex: Female

DRUGS (1)
  1. AVALIDE [Suspect]
     Indication: HYPERTENSION
     Dates: start: 20050411

REACTIONS (4)
  - ARTHRALGIA [None]
  - FATIGUE [None]
  - HEADACHE [None]
  - RETCHING [None]
